FAERS Safety Report 8758555 (Version 1)
Quarter: 2012Q4

REPORT INFORMATION
  Report Type: 
  Country: US (occurrence: US)
  Receive Date: 20120829
  Receipt Date: 20120829
  Transmission Date: 20130627
  Serious: No
  Sender: FDA-Public Use
  Company Number: US-GLAXOSMITHKLINE-A0961824A

PATIENT
  Age: 74 Year
  Sex: Female

DRUGS (14)
  1. ZOVIRAX [Suspect]
     Indication: ORAL HERPES
     Route: 061
     Dates: start: 2007
  2. ZOCOR [Concomitant]
     Dosage: 40MG At night
     Route: 048
  3. ATENOLOL [Concomitant]
     Dosage: 100MG Per day
     Route: 048
  4. PRINIVIL [Concomitant]
     Dosage: 5MG Per day
     Route: 048
  5. PROVENTIL [Concomitant]
     Dosage: 2PUFF Six times per day
     Route: 055
  6. SINGULAIR [Concomitant]
     Dosage: 10MG At night
     Route: 048
  7. CLARITIN [Concomitant]
     Dosage: 10MG Per day
     Route: 048
  8. COLCHICINE [Concomitant]
     Dosage: .6MG Per day
     Route: 048
  9. PRILOSEC [Concomitant]
     Dosage: 20MG Per day
     Route: 048
  10. ELAVIL [Concomitant]
     Dosage: 25MG At night
     Route: 048
  11. HCTZ [Concomitant]
     Dosage: 25MG Per day
     Route: 048
  12. NASONEX [Concomitant]
     Dosage: 2PUFF Per day
     Route: 045
  13. FISH OIL [Concomitant]
     Dosage: 500MG Twice per day
     Route: 048
  14. CALCIUM + D [Concomitant]
     Dosage: 1TAB Per day
     Route: 048

REACTIONS (4)
  - Hypoaesthesia [Recovered/Resolved]
  - Hypoaesthesia oral [Recovered/Resolved]
  - Paraesthesia oral [Recovered/Resolved]
  - Lip dry [Recovered/Resolved]
